FAERS Safety Report 5051700-4 (Version None)
Quarter: 2006Q3

REPORT INFORMATION
  Report Type: 
  Country: None (occurrence: None)
  Receive Date: 20060712
  Receipt Date: 20060712
  Transmission Date: 20061208
  Serious: Yes (Disabling)
  Sender: FDA-Public Use
  Company Number: None

PATIENT
  Age: 56 Year
  Sex: Male

DRUGS (3)
  1. CHLORDIAZEPOXIDE [Suspect]
     Indication: ALCOHOL WITHDRAWAL SYNDROME
     Dosage: TAPER-SEE TEXT
     Dates: start: 20060527, end: 20060529
  2. CLONIDINE [Suspect]
     Dosage: X1
     Dates: start: 20060527
  3. LORAZEPAM [Suspect]
     Dosage: X1
     Dates: start: 20060527

REACTIONS (7)
  - CEREBRAL HAEMORRHAGE [None]
  - FALL [None]
  - GAIT DISTURBANCE [None]
  - HAEMATOMA [None]
  - HEAD INJURY [None]
  - MENTAL STATUS CHANGES [None]
  - ORTHOSTATIC HYPOTENSION [None]
